FAERS Safety Report 5582630-7 (Version None)
Quarter: 2008Q1

REPORT INFORMATION
  Report Type: 
  Country: None (occurrence: None)
  Receive Date: 20080107
  Receipt Date: 20071228
  Transmission Date: 20080703
  Serious: Yes (Other)
  Sender: FDA-Public Use
  Company Number: PHFR2007MT03720

PATIENT
  Age: 41 Year
  Sex: Male
  Weight: 78 kg

DRUGS (1)
  1. VOLTAREN [Suspect]
     Indication: BACK PAIN
     Dosage: 50 MG, TID
     Route: 048
     Dates: start: 20071218, end: 20071219

REACTIONS (9)
  - CELLULITIS [None]
  - ERYTHEMA [None]
  - EYE SWELLING [None]
  - OEDEMA PERIPHERAL [None]
  - PRURITUS [None]
  - PYREXIA [None]
  - RASH MACULAR [None]
  - SKIN EXFOLIATION [None]
  - SWELLING [None]
